FAERS Safety Report 5486795-7 (Version None)
Quarter: 2007Q4

REPORT INFORMATION
  Report Type: 
  Country: None (occurrence: None)
  Receive Date: 20071012
  Receipt Date: 20071012
  Transmission Date: 20080405
  Serious: Yes (Other)
  Sender: FDA-Public Use
  Company Number: None

PATIENT
  Age: 51 Year
  Sex: Male

DRUGS (2)
  1. LEXAPRO [Suspect]
     Indication: ECZEMA
     Dosage: 1PO QD
     Route: 048
     Dates: start: 20020101, end: 20020101
  2. LEXAPRO [Suspect]
     Indication: ECZEMA
     Dosage: 1PO QD
     Route: 048
     Dates: start: 20020101, end: 20070101

REACTIONS (3)
  - DRY SKIN [None]
  - SKIN FISSURES [None]
  - SKIN IRRITATION [None]
